FAERS Safety Report 7096333-3 (Version None)
Quarter: 2010Q4

REPORT INFORMATION
  Report Type: 
  Country: None (occurrence: None)
  Receive Date: 20101111
  Receipt Date: 20090811
  Transmission Date: 20110411
  Serious: No
  Sender: FDA-Public Use
  Company Number: US-KINGPHARMUSA00001-K200900976

PATIENT
  Sex: Female
  Weight: 43.991 kg

DRUGS (8)
  1. AVINZA [Suspect]
     Dosage: 90 MG, QD
     Route: 048
     Dates: start: 20090201, end: 20090811
  2. PERCOCET [Concomitant]
     Indication: BREAKTHROUGH PAIN
     Dosage: 10/325 MG, Q4H
     Route: 048
  3. XANAX [Concomitant]
     Indication: ANXIETY
     Dosage: 0.5 MG, Q4H
     Route: 048
  4. NAPROXEN [Concomitant]
     Indication: SWELLING
     Dosage: 500 MG, BID
     Route: 048
  5. FLEXERIL [Concomitant]
     Dosage: UNK
     Dates: end: 20090812
  6. ALBUTEROL [Concomitant]
     Dosage: 2 DF, QID
  7. ATROVENT BETA [Concomitant]
     Dosage: 2 DF, QID
  8. PULMICORT [Concomitant]
     Dosage: NEBULIZER,

REACTIONS (11)
  - ABNORMAL DREAMS [None]
  - CONTUSION [None]
  - DIPLOPIA [None]
  - DISORIENTATION [None]
  - DISTURBANCE IN ATTENTION [None]
  - HYPOAESTHESIA [None]
  - POOR QUALITY SLEEP [None]
  - SLEEP DISORDER [None]
  - SOMNOLENCE [None]
  - SYNCOPE [None]
  - VISION BLURRED [None]
